FAERS Safety Report 6943049-7 (Version None)
Quarter: 2010Q3

REPORT INFORMATION
  Report Type: 
  Country: None (occurrence: None)
  Receive Date: 20100826
  Receipt Date: 20100812
  Transmission Date: 20110219
  Serious: No
  Sender: FDA-Public Use
  Company Number: US-B.I. PHARMACEUTICALS,INC./RIDGEFIELD-2010-BP-09186BP

PATIENT
  Age: 75 Year
  Sex: Female

DRUGS (3)
  1. MICARDIS [Suspect]
     Indication: HYPERTENSION
     Dosage: 80 MG
     Route: 048
     Dates: start: 19990101
  2. TOPROL-XL [Concomitant]
     Indication: HYPERTENSION
  3. ACTOS [Concomitant]
     Indication: TYPE 2 DIABETES MELLITUS

REACTIONS (3)
  - NASAL CONGESTION [None]
  - PULMONARY CONGESTION [None]
  - SNEEZING [None]
